FAERS Safety Report 13635789 (Version 1)
Quarter: 2017Q2

REPORT INFORMATION
  Report Type: Spontaneous
  Country: US (occurrence: US)
  Receive Date: 20170608
  Receipt Date: 20170608
  Transmission Date: 20170830
  Serious: Yes (Disabling)
  Sender: FDA-Public Use
  Company Number: None

PATIENT
  Age: 66 Year
  Sex: Female
  Weight: 70 kg

DRUGS (6)
  1. MOVICOL [Concomitant]
     Active Substance: POLYETHYLENE GLYCOL 3350\POTASSIUM CHLORIDE\SODIUM BICARBONATE\SODIUM CHLORIDE
  2. OVESTIN VAGINAL CREAM [Concomitant]
  3. COENZYME Q10 [Concomitant]
     Active Substance: UBIDECARENONE
  4. ROSUZET COMPOSITE PACK [Suspect]
     Active Substance: EZETIMIBE\ROSUVASTATIN
     Indication: BLOOD CHOLESTEROL ABNORMAL
     Dosage: ?          QUANTITY:1 TABLET(S);?
     Route: 048
     Dates: start: 20170510, end: 20170519
  5. CARTIA (ASPIRIN) [Concomitant]
     Active Substance: ASPIRIN
  6. SOMAC (PANTOPRAZOLE) [Concomitant]

REACTIONS (5)
  - Asthenia [None]
  - Muscular weakness [None]
  - Fatigue [None]
  - Myalgia [None]
  - Pain [None]

NARRATIVE: CASE EVENT DATE: 20170514
